FAERS Safety Report 6648811-6 (Version None)
Quarter: 2010Q1

REPORT INFORMATION
  Report Type: 
  Country: None (occurrence: None)
  Receive Date: 20100324
  Receipt Date: 20100311
  Transmission Date: 20100710
  Serious: Yes (Hospitalization, Other)
  Sender: FDA-Public Use
  Company Number: PHHY2010IT15180

PATIENT
  Age: 56 Year
  Sex: Female

DRUGS (4)
  1. PAMIDRONATE DISODIUM [Suspect]
     Dosage: 90 MG, QMO
  2. ZOLEDRONATE [Suspect]
     Dosage: 4 MG, QMO
     Dates: end: 20060401
  3. PREDNISONE [Concomitant]
     Dosage: 60 MG PER DAY
  4. PREDNISONE [Concomitant]
     Dosage: 6 MG DAILY

REACTIONS (10)
  - ARTHRALGIA [None]
  - BLOOD CREATININE INCREASED [None]
  - CALLUS FORMATION DELAYED [None]
  - FEMUR FRACTURE [None]
  - FRACTURE NONUNION [None]
  - IMPAIRED HEALING [None]
  - INTERNAL FIXATION OF FRACTURE [None]
  - MULTIPLE FRACTURES [None]
  - OSTEONECROSIS [None]
  - SECONDARY ADRENOCORTICAL INSUFFICIENCY [None]
